FAERS Safety Report 6916138-0 (Version None)
Quarter: 2010Q3

REPORT INFORMATION
  Report Type: 
  Country: None (occurrence: None)
  Receive Date: 20100810
  Receipt Date: 20100803
  Transmission Date: 20110219
  Serious: No
  Sender: FDA-Public Use
  Company Number: US-BIOGENIDEC-2010BI026729

PATIENT
  Sex: Female

DRUGS (4)
  1. TYSABRI [Suspect]
     Indication: MULTIPLE SCLEROSIS
     Route: 042
     Dates: start: 20060926, end: 20080725
  2. TYSABRI [Suspect]
     Route: 042
     Dates: start: 20090725
  3. AVONEX [Concomitant]
     Indication: MULTIPLE SCLEROSIS
     Route: 030
     Dates: start: 20031008
  4. NARCOLEPTIC MEDICINE (NOS) [Concomitant]
     Indication: ASTHENIA

REACTIONS (6)
  - BALANCE DISORDER [None]
  - BLOOD DISORDER [None]
  - MALAISE [None]
  - PROTEIN URINE PRESENT [None]
  - SENSORY DISTURBANCE [None]
  - VISUAL IMPAIRMENT [None]
